FAERS Safety Report 20020709 (Version 1)
Quarter: 2021Q4

REPORT INFORMATION
  Report Type: Spontaneous
  Country: None (occurrence: SA)
  Receive Date: 20211101
  Receipt Date: 20211101
  Transmission Date: 20220303
  Serious: Yes (Hospitalization, Other)
  Sender: FDA-Public Use
  Company Number: SA-Acella Pharmaceuticals, LLC-2121289

PATIENT
  Age: 53 Year
  Sex: Female

DRUGS (4)
  1. NIFEDIPINE [Suspect]
     Active Substance: NIFEDIPINE
     Indication: Hypertension
     Route: 065
  2. IRBESARTAN [Concomitant]
     Active Substance: IRBESARTAN
     Route: 065
  3. ISONIAZID [Concomitant]
     Active Substance: ISONIAZID
     Route: 065
  4. LEVOTHYROXINE [Concomitant]
     Active Substance: LEVOTHYROXINE
     Route: 065

REACTIONS (12)
  - Oedema peripheral [Unknown]
  - Headache [Unknown]
  - Nausea [Unknown]
  - Dizziness [Unknown]
  - Photophobia [Unknown]
  - Limb discomfort [Unknown]
  - Neck pain [Unknown]
  - Subarachnoid haemorrhage [Unknown]
  - Swelling [Unknown]
  - Asthenia [Unknown]
  - Hypoaesthesia [Unknown]
  - Reversible cerebral vasoconstriction syndrome [Unknown]
